FAERS Safety Report 10449343 (Version 1)
Quarter: 2014Q3

REPORT INFORMATION
  Report Type: Report from Study
  Country: CZ (occurrence: CZ)
  Receive Date: 20140912
  Receipt Date: 20140912
  Transmission Date: 20150326
  Serious: Yes (Death, Life-Threatening, Hospitalization)
  Sender: FDA-Public Use
  Company Number: PHHY2014CZ117755

PATIENT
  Age: 75 Year
  Sex: Male

DRUGS (9)
  1. AFINITOR [Suspect]
     Active Substance: EVEROLIMUS
     Dosage: 10 MG, UNK
     Dates: start: 20131217, end: 20140318
  2. AFINITOR [Suspect]
     Active Substance: EVEROLIMUS
     Dosage: 10 MG, UNK
     Dates: start: 20140414, end: 20140515
  3. FURON [Concomitant]
  4. AFINITOR [Suspect]
     Active Substance: EVEROLIMUS
     Indication: METASTATIC RENAL CELL CARCINOMA
     Dosage: 5 MG, UNK
     Dates: start: 20131120, end: 20131216
  5. DUROGESIC [Concomitant]
     Active Substance: FENTANYL
  6. HYDROCORTISONE. [Concomitant]
     Active Substance: HYDROCORTISONE
  7. MALTOFER [Concomitant]
  8. MEGACE [Concomitant]
     Active Substance: MEGESTROL ACETATE
  9. GERATAM [Concomitant]

REACTIONS (1)
  - Dyspnoea [Fatal]

NARRATIVE: CASE EVENT DATE: 20140526
